FAERS Safety Report 13414118 (Version 1)
Quarter: 2017Q2

REPORT INFORMATION
  Report Type: Spontaneous
  Country: US (occurrence: US)
  Receive Date: 20170407
  Receipt Date: 20170407
  Transmission Date: 20170830
  Serious: No
  Sender: FDA-Public Use
  Company Number: US-TEVA-756527USA

PATIENT
  Sex: Female

DRUGS (2)
  1. MORPHINE [Suspect]
     Active Substance: MORPHINE
     Route: 042
  2. ACTIQ [Suspect]
     Active Substance: FENTANYL CITRATE
     Indication: PAIN
     Route: 065

REACTIONS (3)
  - Feeling abnormal [Not Recovered/Not Resolved]
  - Product use in unapproved indication [Unknown]
  - Drooling [Not Recovered/Not Resolved]
